FAERS Safety Report 13813163 (Version 1)
Quarter: 2017Q3

REPORT INFORMATION
  Report Type: Spontaneous
  Country: US (occurrence: US)
  Receive Date: 20170729
  Receipt Date: 20170729
  Transmission Date: 20171127
  Serious: Yes (Hospitalization, Other)
  Sender: FDA-Public Use
  Company Number: US-AUROBINDO-AUR-APL-2017-37854

PATIENT
  Age: 37 Year
  Sex: Male

DRUGS (1)
  1. AMIODARONE HYDROCHLORIDE 200MG TABLETS [Suspect]
     Active Substance: AMIODARONE HYDROCHLORIDE
     Indication: ATRIAL FIBRILLATION
     Dosage: 200 MG, TWO TIMES A DAY
     Route: 065

REACTIONS (1)
  - Lupus-like syndrome [Recovered/Resolved]
